FAERS Safety Report 4524342-4 (Version None)
Quarter: 2004Q4

REPORT INFORMATION
  Report Type: 
  Country: None (occurrence: None)
  Receive Date: 20041119
  Receipt Date: 20040812
  Transmission Date: 20050328
  Serious: Yes (Other)
  Sender: FDA-Public Use
  Company Number: PHEH2004US06648

PATIENT
  Age: 42 Year
  Sex: Female
  Weight: 60.5 kg

DRUGS (5)
  1. ZELNORM [Suspect]
     Indication: IRRITABLE BOWEL SYNDROME
     Dosage: 6 MG, BID, ORAL
     Route: 048
     Dates: start: 20040319, end: 20040615
  2. RHINOCORT [Concomitant]
  3. METAMUCIL-2 [Concomitant]
  4. STOOL SOFTENER [Concomitant]
  5. EXCEDRIN (MIGRAINE) [Concomitant]

REACTIONS (3)
  - ASTHMA [None]
  - PULMONARY FUNCTION TEST ABNORMAL [None]
  - WHEEZING [None]
